FAERS Safety Report 7199795-6 (Version None)
Quarter: 2010Q4

REPORT INFORMATION
  Report Type: 
  Country: None (occurrence: None)
  Receive Date: 20101228
  Receipt Date: 20101222
  Transmission Date: 20110411
  Serious: No
  Sender: FDA-Public Use
  Company Number: US-PFIZER INC-2010177899

PATIENT
  Sex: Male
  Weight: 75 kg

DRUGS (17)
  1. TIKOSYN [Suspect]
     Indication: CARDIAC FAILURE CONGESTIVE
     Dosage: UNK
     Route: 048
     Dates: start: 20050101
  2. METOPROLOL [Concomitant]
     Dosage: 100 MG, 2X/DAY
  3. PRAVASTATIN [Concomitant]
     Dosage: 40 MG, DAILY
  4. LOSARTAN [Concomitant]
     Dosage: 25 MG, DAILY
  5. NIACIN [Concomitant]
     Dosage: 1000 MG, 2X/DAY
  6. ISOSORBIDE [Concomitant]
     Dosage: 20 MG, 2X/DAY
  7. WARFARIN [Concomitant]
     Dosage: 5 MG, DAILY
  8. FUROSEMIDE [Concomitant]
     Dosage: 40 MG, DAILY
  9. METFORMIN [Concomitant]
     Dosage: 1000 MG, DAILY
  10. TERAZOSIN [Concomitant]
     Dosage: 4 MG, DAILY
  11. GLIMEPIRIDE [Concomitant]
     Dosage: 4 MG, 2X/DAY
  12. CINNAMON [Concomitant]
     Dosage: 500 MG, UNK
  13. POTASSIUM CHLORIDE [Concomitant]
     Dosage: 8 MCG, 2X/DAY
  14. MAGNESIUM OXIDE [Concomitant]
     Dosage: 420 MG, DAILY
  15. GLUCOSAMINE [Concomitant]
     Dosage: 1000 MG, 2X/DAY
  16. TYLENOL PM [Concomitant]
     Dosage: UNK, DAILY
  17. GINKGO BILOBA [Concomitant]
     Dosage: 60 MG, 2X/DAY

REACTIONS (3)
  - INCORRECT DOSE ADMINISTERED [None]
  - NASOPHARYNGITIS [None]
  - SINUS DISORDER [None]
